FAERS Safety Report 8284041-2 (Version None)
Quarter: 2012Q2

REPORT INFORMATION
  Report Type: 
  Country: None (occurrence: None)
  Receive Date: 20120413
  Receipt Date: 20111024
  Transmission Date: 20120825
  Serious: No
  Sender: FDA-Public Use
  Company Number: US-ASTRAZENECA-2011SE64523

PATIENT
  Sex: Male

DRUGS (3)
  1. RANITITIDINE [Concomitant]
  2. NEXIUM [Suspect]
     Indication: GASTROOESOPHAGEAL REFLUX DISEASE
     Route: 048
  3. PRILOSEC [Suspect]
     Route: 048

REACTIONS (3)
  - DISEASE RECURRENCE [None]
  - CHEST PAIN [None]
  - DRUG DOSE OMISSION [None]
